FAERS Safety Report 15666111 (Version 1)
Quarter: 2018Q4

REPORT INFORMATION
  Report Type: Spontaneous
  Country: US (occurrence: US)
  Receive Date: 20181128
  Receipt Date: 20181128
  Transmission Date: 20190205
  Serious: Yes (Death)
  Sender: FDA-Public Use
  Company Number: US-FRESENIUS KABI-FK201812073

PATIENT
  Age: 2 Year
  Sex: Male

DRUGS (5)
  1. COLISTIMETHATE (MANUFACTURER UNKNOWN) [Suspect]
     Active Substance: COLISTIMETHATE SODIUM
     Indication: PSEUDOMONAL BACTERAEMIA
     Dosage: UNKNOWN
     Route: 065
  2. AZTREONAM FOR INJECTION (MANUFACTURER UNKNOWN) [Suspect]
     Active Substance: AZTREONAM
     Indication: PSEUDOMONAL BACTERAEMIA
     Dosage: UNKNOWN
     Route: 065
  3. MEROPENEM (MANUFACTURER UNKNOWN) [Suspect]
     Active Substance: MEROPENEM
     Indication: PSEUDOMONAL BACTERAEMIA
     Dosage: UNKNOWN
     Route: 065
  4. TOBRAMYCIN (MANUFACTURER UNKNOWN) [Suspect]
     Active Substance: TOBRAMYCIN
     Indication: PSEUDOMONAL BACTERAEMIA
     Dosage: UNKNOWN
     Route: 065
  5. POLYMYXIN B (MANUFACTURER UNKNOWN) [Suspect]
     Active Substance: POLYMYXIN B
     Indication: PSEUDOMONAL BACTERAEMIA
     Dosage: UNKNOWN
     Route: 065

REACTIONS (5)
  - Arrhythmia [Fatal]
  - Cardiogenic shock [Fatal]
  - Drug resistance [Fatal]
  - Septic shock [Fatal]
  - Influenza [Fatal]
